FAERS Safety Report 6020944-7 (Version None)
Quarter: 2008Q4

REPORT INFORMATION
  Report Type: 
  Country: None (occurrence: None)
  Receive Date: 20081229
  Receipt Date: 20081219
  Transmission Date: 20090506
  Serious: Yes (Hospitalization)
  Sender: FDA-Public Use
  Company Number: US-KINGPHARMUSA00001-K200801442

PATIENT
  Sex: Male
  Weight: 86.168 kg

DRUGS (2)
  1. AVINZA [Suspect]
     Indication: PAIN
     Dosage: 60 MG, QD
     Route: 048
     Dates: start: 20080626, end: 20080808
  2. AVINZA [Suspect]
     Dosage: 90 MG, QD
     Route: 048
     Dates: start: 20080808, end: 20081002

REACTIONS (3)
  - ACQUIRED HYDROCELE [None]
  - CONSTIPATION [None]
  - SCROTAL SWELLING [None]
